FAERS Safety Report 6579500-4 (Version None)
Quarter: 2010Q1

REPORT INFORMATION
  Report Type: 
  Country: None (occurrence: None)
  Receive Date: 20100209
  Receipt Date: 20100209
  Transmission Date: 20100710
  Serious: Yes (Other)
  Sender: FDA-Public Use
  Company Number: None

PATIENT
  Sex: Male
  Weight: 92.9874 kg

DRUGS (1)
  1. CIPROFLOXACIN HCL [Suspect]
     Indication: POST PROCEDURAL COMPLICATION
     Dosage: 250 MG EVERY 12 HOURS PO
     Route: 048
     Dates: start: 20100206, end: 20100208

REACTIONS (3)
  - DEAFNESS [None]
  - DYSACUSIS [None]
  - HEADACHE [None]
